FAERS Safety Report 8936894 (Version 1)
Quarter: 2012Q4

REPORT INFORMATION
  Report Type: 
  Country: US (occurrence: US)
  Receive Date: 20121130
  Receipt Date: 20121130
  Transmission Date: 20130627
  Serious: No
  Sender: FDA-Public Use
  Company Number: US-PFIZER INC-2012299216

PATIENT
  Age: 94 Year
  Sex: Male

DRUGS (2)
  1. LYRICA [Suspect]
     Indication: SHINGLES
     Dosage: UNK
     Dates: start: 2006
  2. LYRICA [Suspect]
     Dosage: double up
     Dates: start: 2012

REACTIONS (1)
  - Drug ineffective [Unknown]
